FAERS Safety Report 16448182 (Version 2)
Quarter: 2019Q3

REPORT INFORMATION
  Report Type: Spontaneous
  Country: US (occurrence: US)
  Receive Date: 20190619
  Receipt Date: 20190910
  Transmission Date: 20191004
  Serious: Yes (Life-Threatening, Hospitalization)
  Sender: FDA-Public Use
  Company Number: US-TEVA-2019-US-1064304

PATIENT
  Age: 58 Year
  Sex: Male

DRUGS (10)
  1. MORPHINE [Interacting]
     Active Substance: MORPHINE
     Indication: BACK PAIN
     Dosage: 120 MILLIGRAM DAILY;
     Route: 065
  2. MORPHINE [Interacting]
     Active Substance: MORPHINE
     Dosage: 60 MILLIGRAM DAILY; TOOK AN EXTRA DOSE OF EXTENDED RELEASE MORPHINE 60MG, 3-4 HOURS PRIOR TO THE ADM
     Route: 065
  3. LEVOTHYROXINE. [Concomitant]
     Active Substance: LEVOTHYROXINE
     Route: 065
  4. NIACIN. [Concomitant]
     Active Substance: NIACIN
     Route: 065
  5. VALSARTAN. [Concomitant]
     Active Substance: VALSARTAN
     Route: 065
  6. METFORMIN [Concomitant]
     Active Substance: METFORMIN HYDROCHLORIDE
     Indication: TYPE 2 DIABETES MELLITUS
     Route: 065
  7. INSULIN [Concomitant]
     Active Substance: INSULIN NOS
     Indication: TYPE 2 DIABETES MELLITUS
     Route: 065
  8. OXYCODONE/ACETAMINOPHEN [Interacting]
     Active Substance: ACETAMINOPHEN\OXYCODONE HYDROCHLORIDE
     Indication: BACK PAIN
     Dosage: OXYCODONE/PARACETAMOL [OXYCODONE/ACETAMINOPHEN] 10/325MG FOUR TIMES DAILY AS NEEDED
     Route: 065
  9. OMEPRAZOLE. [Concomitant]
     Active Substance: OMEPRAZOLE
     Route: 065
  10. GABAPENTIN. [Suspect]
     Active Substance: GABAPENTIN
     Indication: BACK PAIN
     Dosage: 3000 MILLIGRAM DAILY; THRICE DAILY
     Route: 065

REACTIONS (7)
  - Drug interaction [Unknown]
  - Drug withdrawal syndrome [Recovering/Resolving]
  - Respiratory acidosis [Recovering/Resolving]
  - Encephalopathy [Recovering/Resolving]
  - Respiratory failure [Recovered/Resolved]
  - Overdose [Unknown]
  - Renal failure [Recovering/Resolving]
